FAERS Safety Report 25840649 (Version 1)
Quarter: 2025Q3

REPORT INFORMATION
  Report Type: Spontaneous
  Country: US (occurrence: None)
  Receive Date: 20250923
  Receipt Date: 20250923
  Transmission Date: 20251021
  Serious: Yes (Death)
  Sender: FDA-CTU
  Company Number: None

PATIENT
  Age: 73 Year
  Sex: Female
  Weight: 112.2 kg

DRUGS (1)
  1. IBRANCE [Suspect]
     Active Substance: PALBOCICLIB
     Indication: Breast cancer female
     Dosage: OTHER FREQUENCY : DAILY X21 DAYS, THEN 7 DAYS OFF;?
     Route: 048
     Dates: start: 20250627, end: 20250914

REACTIONS (1)
  - Death [None]

NARRATIVE: CASE EVENT DATE: 20250914
